FAERS Safety Report 6285624-1 (Version None)
Quarter: 2009Q3

REPORT INFORMATION
  Report Type: 
  Country: None (occurrence: None)
  Receive Date: 20090724
  Receipt Date: 20090707
  Transmission Date: 20100115
  Serious: Yes (Life-Threatening, Hospitalization, Other)
  Sender: FDA-Public Use
  Company Number: ADE# 09-349DPR

PATIENT
  Age: 69 Year
  Sex: Male

DRUGS (2)
  1. DIGOXIN [Suspect]
     Indication: CARDIAC ASSISTANCE DEVICE USER
     Dosage: ONE TABLET DAILY, FOR 1 1/2 YEARS
  2. DIGOXIN [Suspect]
     Indication: IMPLANTABLE DEFIBRILLATOR INSERTION
     Dosage: ONE TABLET DAILY, FOR 1 1/2 YEARS

REACTIONS (2)
  - ARRHYTHMIA [None]
  - CARDIOACTIVE DRUG LEVEL INCREASED [None]
